FAERS Safety Report 7652605-2 (Version None)
Quarter: 2011Q3

REPORT INFORMATION
  Report Type: 
  Country: None (occurrence: None)
  Receive Date: 20110803
  Receipt Date: 20110729
  Transmission Date: 20111222
  Serious: Yes (Other)
  Sender: FDA-Public Use
  Company Number: GB-BAYER-2011-066987

PATIENT
  Age: 44 Year
  Sex: Female

DRUGS (2)
  1. MIRENA [Suspect]
     Dosage: 20 MCG/24HR, CONT
     Route: 015
     Dates: start: 20110704, end: 20110719
  2. FLUOXETINE [Concomitant]

REACTIONS (11)
  - DERMATITIS ACNEIFORM [None]
  - ABDOMINAL DISTENSION [None]
  - PRURITUS GENERALISED [None]
  - ANAPHYLACTOID REACTION [None]
  - BURNING SENSATION [None]
  - ORAL DISCOMFORT [None]
  - MOUTH ULCERATION [None]
  - THROAT IRRITATION [None]
  - HEADACHE [None]
  - OROPHARYNGEAL PAIN [None]
  - BREAST TENDERNESS [None]
